FAERS Safety Report 16839635 (Version 1)
Quarter: 2019Q3

REPORT INFORMATION
  Report Type: Spontaneous
  Country: CN (occurrence: CN)
  Receive Date: 20190923
  Receipt Date: 20190923
  Transmission Date: 20191005
  Serious: Yes (Hospitalization)
  Sender: FDA-Public Use
  Company Number: CN-PFIZER INC-2019407836

PATIENT
  Age: 65 Year
  Sex: Male

DRUGS (4)
  1. VASOREL [Concomitant]
     Active Substance: TRIMETAZIDINE DIHYDROCHLORIDE
     Indication: CORONARY ARTERY DISEASE
     Dosage: 35 MG, BID
     Route: 048
     Dates: start: 20190628, end: 20190630
  2. LIPITOR [Suspect]
     Active Substance: ATORVASTATIN CALCIUM
     Indication: CORONARY ARTERY DISEASE
     Dosage: 20 MG, QD
     Route: 048
     Dates: start: 20190628, end: 20190630
  3. CORDARONE [Suspect]
     Active Substance: AMIODARONE HYDROCHLORIDE
     Indication: CORONARY ARTERY DISEASE
     Dosage: 0.2 G, QD
     Route: 048
     Dates: start: 20190628, end: 20190630
  4. AMARYL [Concomitant]
     Active Substance: GLIMEPIRIDE
     Indication: DIABETES MELLITUS
     Dosage: 2 MG, QD
     Route: 048
     Dates: start: 20190628, end: 20190630

REACTIONS (1)
  - Hepatic function abnormal [Recovered/Resolved with Sequelae]

NARRATIVE: CASE EVENT DATE: 20190630
